FAERS Safety Report 9369874 (Version 1)
Quarter: 2013Q2

REPORT INFORMATION
  Report Type: Spontaneous
  Country: SG (occurrence: SG)
  Receive Date: 20130626
  Receipt Date: 20130626
  Transmission Date: 20140414
  Serious: Yes (Other)
  Sender: FDA-Public Use
  Company Number: SG-009507513-1306SGP011738

PATIENT
  Age: 10 Year
  Sex: Female

DRUGS (1)
  1. NASONEX [Suspect]

REACTIONS (1)
  - Urticaria [Unknown]
